FAERS Safety Report 7006082-5 (Version None)
Quarter: 2010Q3

REPORT INFORMATION
  Report Type: 
  Country: None (occurrence: None)
  Receive Date: 20100921
  Receipt Date: 20100909
  Transmission Date: 20110219
  Serious: Yes (Other)
  Sender: FDA-Public Use
  Company Number: US-PFIZER INC-2010114183

PATIENT
  Sex: Male

DRUGS (1)
  1. LYRICA [Suspect]
     Dosage: UNK

REACTIONS (5)
  - DYSKINESIA [None]
  - FORMICATION [None]
  - INSOMNIA [None]
  - PARAESTHESIA [None]
  - WITHDRAWAL SYNDROME [None]
